FAERS Safety Report 22586617 (Version 1)
Quarter: 2023Q2

REPORT INFORMATION
  Report Type: Spontaneous
  Country: US (occurrence: US)
  Receive Date: 20230611
  Receipt Date: 20230611
  Transmission Date: 20230721
  Serious: No
  Sender: FDA-Public Use
  Company Number: US-PERRIGO-23US005914

PATIENT
  Age: 65 Year
  Sex: Female
  Weight: 94.331 kg

DRUGS (9)
  1. DICLOFENAC SODIUM [Suspect]
     Active Substance: DICLOFENAC SODIUM
     Indication: Pain
     Dosage: 4 G, 3 TO 4 TIMES A DAY
     Route: 061
     Dates: start: 20230512
  2. LEVOTHYROXINE [Concomitant]
     Active Substance: LEVOTHYROXINE
     Indication: Autoimmune thyroiditis
     Dosage: UNK
     Route: 065
     Dates: start: 2007
  3. LEVOTHYROXINE [Concomitant]
     Active Substance: LEVOTHYROXINE
     Indication: Hypothyroidism
  4. TELMISARTAN [Concomitant]
     Active Substance: TELMISARTAN
     Indication: Hypertension
     Dosage: 80 MG, UNKNOWN
     Route: 065
     Dates: start: 2007
  5. ESTRADIOL / NORETHINDRONE ACETATE [Concomitant]
     Active Substance: ESTRADIOL\NORETHINDRONE ACETATE
     Indication: Menopause
     Dosage: 0.5 M/0.1 MG, UNKNOWN
     Route: 065
     Dates: start: 2010
  6. ESTRADIOL / NORETHINDRONE ACETATE [Concomitant]
     Active Substance: ESTRADIOL\NORETHINDRONE ACETATE
     Indication: Pruritus
  7. VITAMIN D NOS [Concomitant]
     Active Substance: VITAMIN D NOS
     Indication: Vitamin D decreased
     Dosage: 2000 IU, UNKNOWN
     Route: 065
     Dates: start: 2010
  8. LIOTHYRONINE [Concomitant]
     Active Substance: LIOTHYRONINE
     Indication: Autoimmune thyroiditis
     Dosage: UNK
     Route: 065
     Dates: start: 2019
  9. LIOTHYRONINE [Concomitant]
     Active Substance: LIOTHYRONINE
     Indication: Hypothyroidism

REACTIONS (11)
  - Allergic reaction to excipient [Not Recovered/Not Resolved]
  - Throat irritation [Not Recovered/Not Resolved]
  - Throat tightness [Not Recovered/Not Resolved]
  - Sinus operation [Not Recovered/Not Resolved]
  - Productive cough [Not Recovered/Not Resolved]
  - Cough [Not Recovered/Not Resolved]
  - Eye pruritus [Not Recovered/Not Resolved]
  - Bronchospasm [Not Recovered/Not Resolved]
  - Wheezing [Not Recovered/Not Resolved]
  - Product administered at inappropriate site [Unknown]
  - Off label use [Unknown]

NARRATIVE: CASE EVENT DATE: 20230512
